FAERS Safety Report 10330262 (Version 2)
Quarter: 2014Q3

REPORT INFORMATION
  Report Type: Report from Study
  Country: AT (occurrence: AT)
  Receive Date: 20140721
  Receipt Date: 20140721
  Transmission Date: 20150326
  Serious: Yes (Hospitalization)
  Sender: FDA-Public Use
  Company Number: AT-AMGEN-AUTCT2014030486

PATIENT
  Age: 78 Year
  Sex: Female

DRUGS (5)
  1. DENOSUMAB [Suspect]
     Active Substance: DENOSUMAB
     Indication: BONE DENSITY DECREASED
     Dosage: 60 MG, Q6MO
     Route: 058
     Dates: start: 20100415
  2. LANITOP [Concomitant]
     Active Substance: METILDIGOXIN
     Dosage: 0.15 MG, QD
     Route: 048
     Dates: start: 2009
  3. SINTROM [Concomitant]
     Active Substance: ACENOCOUMAROL
     Dosage: UNK
     Route: 048
     Dates: start: 2009
  4. CONCOR [Concomitant]
     Active Substance: BISOPROLOL FUMARATE
     Dosage: 1.25 MG, QD
     Route: 048
     Dates: start: 2009
  5. EUTHYROX [Concomitant]
     Active Substance: LEVOTHYROXINE SODIUM
     Dosage: 100 MG, QD
     Route: 048
     Dates: start: 2009

REACTIONS (2)
  - Mitral valve repair [Recovered/Resolved]
  - Mitral valve disease [Recovered/Resolved]

NARRATIVE: CASE EVENT DATE: 201312
